FAERS Safety Report 6983890-8 (Version None)
Quarter: 2010Q3

REPORT INFORMATION
  Report Type: 
  Country: None (occurrence: None)
  Receive Date: 20100914
  Receipt Date: 20090427
  Transmission Date: 20110219
  Serious: No
  Sender: FDA-Public Use
  Company Number: US-WYE-H08676609

PATIENT
  Age: 47 Year
  Sex: Male
  Weight: 86.26 kg

DRUGS (1)
  1. ADVIL PM [Suspect]
     Indication: ANALGESIC THERAPY
     Dosage: 2 CAPLETS AT BED TIME
     Route: 048
     Dates: start: 20090319, end: 20090319

REACTIONS (2)
  - DRUG INEFFECTIVE [None]
  - PRODUCT QUALITY ISSUE [None]
